FAERS Safety Report 18379276 (Version 1)
Quarter: 2020Q4

REPORT INFORMATION
  Report Type: Spontaneous
  Country: GB (occurrence: GB)
  Receive Date: 20201013
  Receipt Date: 20201013
  Transmission Date: 20210114
  Serious: Yes (Other)
  Sender: FDA-Public Use
  Company Number: GB-ASCEND THERAPEUTICS US, LLC-2092737

PATIENT
  Age: 51 Year
  Sex: Female
  Weight: 65.77 kg

DRUGS (5)
  1. ESTROGEL [Suspect]
     Active Substance: ESTRADIOL
     Indication: HORMONE REPLACEMENT THERAPY
     Route: 061
     Dates: start: 20200801, end: 20200904
  2. ESTROGEL [Suspect]
     Active Substance: ESTRADIOL
  3. PROGESTERONE. [Concomitant]
     Active Substance: PROGESTERONE
     Route: 065
  4. OESTRODOSE (ESTRADIOL) [Suspect]
     Active Substance: ESTRADIOL
     Route: 061
     Dates: start: 20200801, end: 20200904
  5. OESTROGEL (ESTRADIOL), UNKNOWN [Concomitant]
     Active Substance: ESTRADIOL
     Route: 065

REACTIONS (6)
  - Hot flush [Not Recovered/Not Resolved]
  - Depressed mood [Not Recovered/Not Resolved]
  - Drug ineffective [Unknown]
  - Poor quality sleep [Not Recovered/Not Resolved]
  - Menopausal symptoms [Unknown]
  - Product substitution issue [Unknown]

NARRATIVE: CASE EVENT DATE: 20200805
